FAERS Safety Report 19936192 (Version 1)
Quarter: 2021Q4

REPORT INFORMATION
  Report Type: Spontaneous
  Country: US (occurrence: US)
  Receive Date: 20211008
  Receipt Date: 20211008
  Transmission Date: 20220303
  Serious: No
  Sender: FDA-Public Use
  Company Number: US-BOEHRINGERINGELHEIM-2021-BI-131671

PATIENT
  Sex: Female

DRUGS (1)
  1. JARDIANCE [Suspect]
     Active Substance: EMPAGLIFLOZIN
     Indication: Product used for unknown indication
     Dosage: UNKNOWN
     Dates: start: 202109

REACTIONS (4)
  - Decreased appetite [Unknown]
  - Therapeutic response unexpected [Unknown]
  - Pollakiuria [Unknown]
  - Polydipsia [Unknown]

NARRATIVE: CASE EVENT DATE: 20210901
